FAERS Safety Report 16313086 (Version 7)
Quarter: 2020Q4

REPORT INFORMATION
  Report Type: Other
  Country: CA (occurrence: CA)
  Receive Date: 20190515
  Receipt Date: 20201026
  Transmission Date: 20210113
  Serious: Yes (Other)
  Sender: FDA-Public Use
  Company Number: CA-ROCHE-2317366

PATIENT
  Age: 61 Year
  Sex: Female

DRUGS (6)
  1. PREDNISONE. [Concomitant]
     Active Substance: PREDNISONE
  2. XOLAIR [Suspect]
     Active Substance: OMALIZUMAB
     Route: 058
     Dates: start: 201511
  3. XOLAIR [Suspect]
     Active Substance: OMALIZUMAB
     Route: 058
     Dates: start: 20160105, end: 20160105
  4. PREDNISONE. [Concomitant]
     Active Substance: PREDNISONE
     Indication: PRODUCT USED FOR UNKNOWN INDICATION
     Route: 065
  5. XOLAIR [Suspect]
     Active Substance: OMALIZUMAB
     Indication: CHRONIC SPONTANEOUS URTICARIA
     Route: 058
     Dates: start: 20140729
  6. XOLAIR [Suspect]
     Active Substance: OMALIZUMAB
     Route: 058

REACTIONS (27)
  - Product dose omission issue [Unknown]
  - Mast cell activation syndrome [Unknown]
  - Pruritus [Recovered/Resolved]
  - Immune system disorder [Unknown]
  - Diarrhoea [Unknown]
  - Dyspnoea [Unknown]
  - Swollen tongue [Recovered/Resolved]
  - Disorientation [Unknown]
  - Vomiting [Unknown]
  - Therapeutic product effect decreased [Unknown]
  - Loss of consciousness [Unknown]
  - Urticaria [Unknown]
  - Nausea [Unknown]
  - Injection site pain [Unknown]
  - Swelling [Unknown]
  - Eye swelling [Unknown]
  - Flushing [Recovered/Resolved]
  - Dizziness [Recovered/Resolved]
  - Musculoskeletal stiffness [Recovered/Resolved]
  - Swelling face [Recovered/Resolved]
  - Cough [Unknown]
  - Myocardial infarction [Unknown]
  - Hypersensitivity [Unknown]
  - Abdominal pain lower [Unknown]
  - Blood iron decreased [Unknown]
  - Injection related reaction [Unknown]
  - Gastroenteritis viral [Unknown]

NARRATIVE: CASE EVENT DATE: 20140729
